FAERS Safety Report 6767112-9 (Version None)
Quarter: 2010Q2

REPORT INFORMATION
  Report Type: 
  Country: None (occurrence: None)
  Receive Date: 20100614
  Receipt Date: 20100604
  Transmission Date: 20101027
  Serious: Yes (Other)
  Sender: FDA-Public Use
  Company Number: GB-JNJFOC-20100602274

PATIENT
  Age: 47 Year
  Sex: Female

DRUGS (6)
  1. ITRACONAZOLE [Suspect]
     Indication: BRONCHOPULMONARY ASPERGILLOSIS ALLERGIC
     Route: 065
  2. ITRACONAZOLE [Suspect]
     Route: 048
  3. RIFAMYCIN [Interacting]
     Indication: MYCOBACTERIAL INFECTION
     Route: 065
  4. ETHAMBUTOL HYDROCHLORIDE [Concomitant]
     Route: 065
  5. CIPROFLOXACIN [Concomitant]
     Route: 065
  6. OMEPRAZOLE [Concomitant]
     Route: 065

REACTIONS (7)
  - DIARRHOEA [None]
  - DRUG INTERACTION [None]
  - DRUG LEVEL DECREASED [None]
  - DRUG RESISTANCE [None]
  - DRUG TOLERANCE DECREASED [None]
  - FATIGUE [None]
  - NAUSEA [None]
